FAERS Safety Report 8518968-0 (Version None)
Quarter: 2012Q3

REPORT INFORMATION
  Report Type: 
  Country: None (occurrence: None)
  Receive Date: 20120718
  Receipt Date: 20120711
  Transmission Date: 20120928
  Serious: Yes (Other)
  Sender: FDA-Public Use
  Company Number: GB-GLAXOSMITHKLINE-B0815235A

PATIENT
  Age: 48 Year
  Sex: Male

DRUGS (3)
  1. ZONEGRAN [Concomitant]
  2. POTIGA [Suspect]
     Indication: PARTIAL SEIZURES
     Dosage: 200MG THREE TIMES PER DAY
     Route: 065
     Dates: start: 20120101
  3. KEPPRA [Concomitant]

REACTIONS (3)
  - HALLUCINATION, VISUAL [None]
  - HALLUCINATION, AUDITORY [None]
  - EMOTIONAL DISTRESS [None]
